FAERS Safety Report 11792693 (Version 1)
Quarter: 2015Q4

REPORT INFORMATION
  Report Type: Spontaneous
  Country: KR (occurrence: None)
  Receive Date: 20151130
  Receipt Date: 20151130
  Transmission Date: 20160305
  Serious: Yes (Hospitalization, Other)
  Sender: FDA-Public Use
  Company Number: 2015RR-106559

PATIENT
  Age: 48 Year
  Sex: Male

DRUGS (25)
  1. MOXIFLOXACIN (MOXIFLOXACIN) [Suspect]
     Active Substance: MOXIFLOXACIN
     Indication: PNEUMONIA BACTERIAL
     Route: 042
  2. VANCOMYCIN (VANCOMYCIN) [Suspect]
     Active Substance: VANCOMYCIN
     Indication: PRODUCT USED FOR UNKNOWN INDICATION
     Route: 042
  3. AZITHROMYCIN [Concomitant]
     Active Substance: AZITHROMYCIN ANHYDROUS
  4. CICLOSPORIN (CICLOSPORIN) [Concomitant]
     Active Substance: CYCLOSPORINE
  5. PREDNISOLONE (PREDNISOLONE) [Concomitant]
     Active Substance: PREDNISOLONE
  6. CEFTRIAXONE (CEFTRIAXONE) [Suspect]
     Active Substance: CEFTRIAXONE
     Indication: PRODUCT USED FOR UNKNOWN INDICATION
  7. IMIPENEM (IMIPENEM) [Concomitant]
     Active Substance: IMIPENEM
  8. COTRIMOXAZOLE [Suspect]
     Active Substance: SULFAMETHOXAZOLE\TRIMETHOPRIM
     Indication: MENINGITIS
  9. RIFAMPICIN (RIFAMPICIN) [Concomitant]
     Active Substance: RIFAMPIN
  10. METFORMIN [Concomitant]
     Active Substance: METFORMIN HYDROCHLORIDE
  11. LINEZOLID (LINEZOLID) [Suspect]
     Active Substance: LINEZOLID
     Indication: PRODUCT USED FOR UNKNOWN INDICATION
  12. LEVOFLOXACIN (LEVOFLOXACIN) [Suspect]
     Active Substance: LEVOFLOXACIN
     Indication: PRODUCT USED FOR UNKNOWN INDICATION
     Route: 048
  13. LINEZOLID (LINEZOLID) [Suspect]
     Active Substance: LINEZOLID
     Indication: MENINGITIS
     Route: 048
  14. AMIKACIN (AMIKACIN) [Suspect]
     Active Substance: AMIKACIN
     Indication: PRODUCT USED FOR UNKNOWN INDICATION
     Route: 037
  15. ROXITHROMYCIN (ROXITHROMYCIN) [Suspect]
     Active Substance: ROXITHROMYCIN
     Indication: PRODUCT USED FOR UNKNOWN INDICATION
  16. MEROPENEM (MEROPENEM) [Concomitant]
     Active Substance: MEROPENEM
  17. RIFAMPIN (RIFAMPIN) [Concomitant]
     Active Substance: RIFAMPIN
  18. TEICOPLANIN (TEICOPLANIN) [Concomitant]
     Active Substance: TEICOPLANIN
  19. VANCOMYCIN (VANCOMYCIN) [Suspect]
     Active Substance: VANCOMYCIN
     Indication: PRODUCT USED FOR UNKNOWN INDICATION
  20. AMIKACIN (AMIKACIN) [Suspect]
     Active Substance: AMIKACIN
     Indication: PRODUCT USED FOR UNKNOWN INDICATION
  21. DOXYCYCLINE. [Concomitant]
     Active Substance: DOXYCYCLINE
  22. CEFTRIAXONE (CEFTRIAXONE) [Suspect]
     Active Substance: CEFTRIAXONE
     Indication: PNEUMONIA BACTERIAL
  23. VANCOMYCIN (VANCOMYCIN) [Suspect]
     Active Substance: VANCOMYCIN
     Indication: PRODUCT USED FOR UNKNOWN INDICATION
  24. CLINDAMYCIN [Suspect]
     Active Substance: CLINDAMYCIN\CLINDAMYCIN PHOSPHATE
     Indication: PNEUMONIA BACTERIAL
     Route: 042
  25. SITAGLIPTIN (SITAGLIPTIN) [Concomitant]
     Active Substance: SITAGLIPTIN

REACTIONS (9)
  - Meningitis [None]
  - Sepsis [None]
  - Toxicity to various agents [None]
  - Hearing impaired [None]
  - Malabsorption from administration site [None]
  - Disease recurrence [None]
  - Neutropenia [None]
  - Brain abscess [None]
  - Therapeutic response changed [None]
